FAERS Safety Report 14896540 (Version 2)
Quarter: 2018Q2

REPORT INFORMATION
  Report Type: Spontaneous
  Country: IL (occurrence: IL)
  Receive Date: 20180515
  Receipt Date: 20180525
  Transmission Date: 20180711
  Serious: Yes (Hospitalization, Other)
  Sender: FDA-Public Use
  Company Number: IL-PFIZER INC-2018197231

PATIENT
  Age: 78 Year
  Sex: Female

DRUGS (6)
  1. CARDILOC [Concomitant]
     Active Substance: BISOPROLOL FUMARATE
     Dosage: UNK
  2. PALBOCICLIB [Suspect]
     Active Substance: PALBOCICLIB
     Dosage: 100 MG, FIRST CYCLE FOR 6 MONTHS
     Dates: end: 201802
  3. DISOTHIAZIDE [Concomitant]
     Active Substance: HYDROCHLOROTHIAZIDE
     Indication: BLOOD PRESSURE ABNORMAL
     Dosage: 12.5
  4. PALBOCICLIB [Suspect]
     Active Substance: PALBOCICLIB
     Dosage: 100 MG, ANOTHER CYCLE FOR FOUR MONTHS
  5. CRESTOR [Concomitant]
     Active Substance: ROSUVASTATIN CALCIUM
     Dosage: UNK
  6. TAMOXIFEN [Suspect]
     Active Substance: TAMOXIFEN
     Dosage: UNK

REACTIONS (4)
  - Visual field defect [Not Recovered/Not Resolved]
  - Hemiparesis [Not Recovered/Not Resolved]
  - Cerebrovascular accident [Not Recovered/Not Resolved]
  - Loss of personal independence in daily activities [Not Recovered/Not Resolved]

NARRATIVE: CASE EVENT DATE: 201804
